FAERS Safety Report 11879172 (Version 5)
Quarter: 2016Q1

REPORT INFORMATION
  Report Type: Spontaneous
  Country: US (occurrence: US)
  Receive Date: 20151230
  Receipt Date: 20160219
  Transmission Date: 20160526
  Serious: Yes (Other)
  Sender: FDA-Public Use
  Company Number: US-PFIZER INC-2015427414

PATIENT
  Age: 75 Year
  Sex: Female
  Weight: 84 kg

DRUGS (4)
  1. IBRANCE [Suspect]
     Active Substance: PALBOCICLIB
     Indication: BREAST CANCER
     Dosage: 125 MG, CYCLIC (DAY 1-21 Q 28 DAYS)
     Route: 048
     Dates: start: 20151113
  2. IBRANCE [Suspect]
     Active Substance: PALBOCICLIB
     Dosage: UNK
  3. IBRANCE [Suspect]
     Active Substance: PALBOCICLIB
     Dosage: 125 MG, CYCLIC (DAY 1-12 Q 21 DAYS)
     Route: 048
  4. EXEMESTANE. [Suspect]
     Active Substance: EXEMESTANE
     Indication: BREAST CANCER
     Dosage: UNK UNK, DAILY

REACTIONS (12)
  - Productive cough [Unknown]
  - Pyrexia [Unknown]
  - Night sweats [Unknown]
  - White blood cell count decreased [Unknown]
  - Sinusitis [Recovering/Resolving]
  - Sinus congestion [Not Recovered/Not Resolved]
  - Upper-airway cough syndrome [Unknown]
  - Back pain [Unknown]
  - Product use issue [Unknown]
  - Neutropenia [Not Recovered/Not Resolved]
  - Ear infection [Unknown]
  - Alopecia [Unknown]

NARRATIVE: CASE EVENT DATE: 2015
